FAERS Safety Report 8362630-4 (Version None)
Quarter: 2012Q2

REPORT INFORMATION
  Report Type: 
  Country: None (occurrence: None)
  Receive Date: 20120516
  Receipt Date: 20120511
  Transmission Date: 20120825
  Serious: No
  Sender: FDA-Public Use
  Company Number: US-PFIZER INC-2012116781

PATIENT

DRUGS (1)
  1. LYRICA [Suspect]
     Dosage: 150 MG, 3X/DAY ( FOR 6 YEARS)

REACTIONS (1)
  - DENTAL CARIES [None]
